FAERS Safety Report 8482448-1 (Version None)
Quarter: 2012Q3

REPORT INFORMATION
  Report Type: 
  Country: None (occurrence: None)
  Receive Date: 20120702
  Receipt Date: 20120614
  Transmission Date: 20120928
  Serious: Yes (Other)
  Sender: FDA-Public Use
  Company Number: BE-GLAXOSMITHKLINE-B0804116A

PATIENT
  Sex: Male
  Weight: 68 kg

DRUGS (9)
  1. DIAMICRON [Concomitant]
  2. EMCORETIC [Concomitant]
  3. SIMVASTATIN [Concomitant]
  4. ASPIRIN [Concomitant]
  5. PLAVIX [Concomitant]
  6. WELLBUTRIN [Suspect]
     Indication: PRODUCT USED FOR UNKNOWN INDICATION
     Dosage: 150MG PER DAY
     Route: 065
     Dates: start: 20120401, end: 20120505
  7. ALLOPURINOL [Concomitant]
     Dosage: 100MG PER DAY
     Dates: start: 20120301
  8. PANTOPRAZOLE [Concomitant]
  9. MEDROL [Concomitant]

REACTIONS (4)
  - RASH ERYTHEMATOUS [None]
  - RASH MACULAR [None]
  - PURPURA [None]
  - SYSTEMIC LUPUS ERYTHEMATOSUS RASH [None]
